FAERS Safety Report 8807256 (Version 2)
Quarter: 2012Q4

REPORT INFORMATION
  Report Type: 
  Country: DK (occurrence: DK)
  Receive Date: 20120925
  Receipt Date: 20121011
  Transmission Date: 20130627
  Serious: Yes (Other)
  Sender: FDA-Public Use
  Company Number: PHHY2012DK082236

PATIENT
  Age: 10 Year
  Sex: Male

DRUGS (1)
  1. SCOPODERM TTS [Suspect]
     Indication: MOTION SICKNESS
     Dosage: 1 DF, Q72H, 1 plaster/3 days
     Route: 062
     Dates: start: 20120723, end: 20120723

REACTIONS (5)
  - Loss of consciousness [Recovered/Resolved]
  - Hypotonia [Recovered/Resolved]
  - Abnormal behaviour [Unknown]
  - Feeling abnormal [Unknown]
  - Visual impairment [Recovered/Resolved]
